FAERS Safety Report 21634329 (Version 1)
Quarter: 2022Q4

REPORT INFORMATION
  Report Type: Report from Study
  Country: US (occurrence: US)
  Receive Date: 20221123
  Receipt Date: 20221123
  Transmission Date: 20230113
  Serious: No
  Sender: FDA-Public Use
  Company Number: US-ABBVIE-22K-163-4414123-00

PATIENT
  Sex: Female

DRUGS (1)
  1. VENCLEXTA [Suspect]
     Active Substance: VENETOCLAX
     Indication: Myelodysplastic syndrome
     Route: 048
     Dates: start: 20211124

REACTIONS (8)
  - Pruritus [Unknown]
  - Pallor [Unknown]
  - Dry skin [Unknown]
  - Loss of personal independence in daily activities [Unknown]
  - Platelet count decreased [Unknown]
  - Adverse drug reaction [Unknown]
  - Hypophagia [Unknown]
  - Hypersomnia [Unknown]
